FAERS Safety Report 12192687 (Version 2)
Quarter: 2016Q1

REPORT INFORMATION
  Report Type: Report from Study
  Country: LV (occurrence: LV)
  Receive Date: 20160318
  Receipt Date: 20160325
  Transmission Date: 20160526
  Serious: Yes (Hospitalization)
  Sender: FDA-Public Use
  Company Number: LV-INCYTE CORPORATION-2016IN001602

PATIENT
  Age: 60 Year
  Sex: Female

DRUGS (1)
  1. INC424 [Suspect]
     Active Substance: RUXOLITINIB
     Indication: MYELOFIBROSIS
     Dosage: 15 MG, BID
     Route: 065
     Dates: start: 201301, end: 20160222

REACTIONS (3)
  - Blast cell crisis [Not Recovered/Not Resolved]
  - Anaemia [Unknown]
  - Thrombocytopenia [Unknown]

NARRATIVE: CASE EVENT DATE: 20160225
